FAERS Safety Report 14984228 (Version 3)
Quarter: 2020Q1

REPORT INFORMATION
  Report Type: Report from Study
  Country: FR (occurrence: FR)
  Receive Date: 20180607
  Receipt Date: 20200117
  Transmission Date: 20200409
  Serious: Yes (Death, Hospitalization, Other)
  Sender: FDA-Public Use
  Company Number: FR-JAZZ-2017-FR-015430

PATIENT
  Age: 2 Year
  Sex: Male
  Weight: 10 kg

DRUGS (9)
  1. METHOTREXATE. [Concomitant]
     Active Substance: METHOTREXATE
     Indication: PROPHYLAXIS
  2. XALUPRINE [Concomitant]
     Active Substance: MERCAPTOPURINE
     Indication: PALLIATIVE CARE
     Dosage: 12 MG, QD
     Route: 048
     Dates: start: 20160408
  3. THIOTEPA. [Concomitant]
     Active Substance: THIOTEPA
     Indication: PRODUCT USED FOR UNKNOWN INDICATION
     Dosage: 10 MG/KG, UNK
  4. FLUDARABINE [Concomitant]
     Active Substance: FLUDARABINE PHOSPHATE
     Indication: PRODUCT USED FOR UNKNOWN INDICATION
     Dosage: 150 MG/M2, UNK
  5. ACICLOVIR [Concomitant]
     Active Substance: ACYCLOVIR
     Indication: ANTIVIRAL TREATMENT
     Dosage: 180 MG, QD
     Route: 048
     Dates: start: 20160524, end: 20160613
  6. VANCOMYCIN [Concomitant]
     Active Substance: VANCOMYCIN
     Indication: ANTIBIOTIC THERAPY
     Dosage: 460 MG, QD
     Route: 042
     Dates: start: 20160524, end: 20160603
  7. HEPARIN [Concomitant]
     Active Substance: HEPARIN SODIUM
     Indication: PROPHYLAXIS
     Dosage: 100 IU/KG, UNK
  8. DEFITELIO [Suspect]
     Active Substance: DEFIBROTIDE SODIUM
     Indication: PROPHYLAXIS
     Dosage: 25 MG/KG, QD
     Route: 042
     Dates: start: 20160101, end: 20160208
  9. BUSULFAN. [Concomitant]
     Active Substance: BUSULFAN
     Indication: PRODUCT USED FOR UNKNOWN INDICATION
     Dosage: 19.2 MG/KG, UNK

REACTIONS (15)
  - Diarrhoea [Not Recovered/Not Resolved]
  - Decreased appetite [Fatal]
  - Vomiting [Unknown]
  - Abdominal pain [Fatal]
  - Acute lymphocytic leukaemia recurrent [Fatal]
  - Weight decreased [Fatal]
  - Oliguria [Fatal]
  - Pyrexia [Not Recovered/Not Resolved]
  - Aplastic anaemia [Not Recovered/Not Resolved]
  - Haemorrhagic disorder [Fatal]
  - Infection [Unknown]
  - Haemodynamic instability [Not Recovered/Not Resolved]
  - Acute graft versus host disease [Unknown]
  - Fatigue [Fatal]
  - Off label use [Unknown]

NARRATIVE: CASE EVENT DATE: 20160101
